FAERS Safety Report 16132294 (Version 1)
Quarter: 2019Q2

REPORT INFORMATION
  Report Type: Spontaneous
  Country: US (occurrence: US)
  Receive Date: 20190328
  Receipt Date: 20190328
  Transmission Date: 20190711
  Serious: No
  Sender: FDA-Public Use
  Company Number: None

PATIENT
  Age: 27 Year
  Sex: Female
  Weight: 116.7 kg

DRUGS (1)
  1. CARBOPROST [Suspect]
     Active Substance: CARBOPROST
     Indication: POSTPARTUM HAEMORRHAGE
     Dosage: ?          OTHER FREQUENCY:ONCE;?
     Route: 030
     Dates: start: 20180305

REACTIONS (4)
  - Anaesthetic complication pulmonary [None]
  - Uterine dilation and curettage [None]
  - Bronchospasm [None]
  - Asthma [None]

NARRATIVE: CASE EVENT DATE: 20180305
